FAERS Safety Report 5882320-7 (Version None)
Quarter: 2008Q3

REPORT INFORMATION
  Report Type: 
  Country: None (occurrence: None)
  Receive Date: 20080912
  Receipt Date: 20080730
  Transmission Date: 20090109
  Serious: No
  Sender: FDA-Public Use
  Company Number: US-ABBOTT-08P-163-0467573-00

PATIENT
  Sex: Female
  Weight: 99.88 kg

DRUGS (5)
  1. HUMIRA [Suspect]
     Indication: PSORIASIS
     Route: 058
     Dates: start: 20080514, end: 20080701
  2. HUMIRA [Suspect]
     Indication: PSORIATIC ARTHROPATHY
  3. COLESTIPOL HYDROCHLORIDE [Concomitant]
     Indication: DRUG USE FOR UNKNOWN INDICATION
     Route: 048
  4. OMEPRAZOLE MAGNESIUM [Concomitant]
     Indication: DRUG USE FOR UNKNOWN INDICATION
     Route: 048
  5. MULTI-VITAMINS [Concomitant]
     Indication: DRUG USE FOR UNKNOWN INDICATION
     Route: 048

REACTIONS (6)
  - DEPRESSION [None]
  - DYSPNOEA [None]
  - EYE PAIN [None]
  - NERVE DEGENERATION [None]
  - VISUAL IMPAIRMENT [None]
  - WEIGHT INCREASED [None]
